FAERS Safety Report 6618013-8 (Version None)
Quarter: 2010Q1

REPORT INFORMATION
  Report Type: 
  Country: None (occurrence: None)
  Receive Date: 20100308
  Receipt Date: 20100223
  Transmission Date: 20100710
  Serious: Yes (Hospitalization, Other)
  Sender: FDA-Public Use
  Company Number: US-PFIZER INC-2008053403

PATIENT
  Sex: Male
  Weight: 86.2 kg

DRUGS (15)
  1. CHANTIX [Suspect]
     Indication: SMOKING CESSATION THERAPY
     Dosage: 0.5 MG, 1X/DAY
     Route: 048
     Dates: start: 20080601
  2. CHANTIX [Suspect]
     Dosage: 0.5 MG, 2X/DAY
  3. CHANTIX [Suspect]
     Dosage: 1.0 MG, 2X/DAY
  4. KLONOPIN [Suspect]
     Dosage: 1.0 MG, 2X/DAY
     Route: 048
  5. KEPPRA [Suspect]
     Indication: CONVULSION
     Dosage: UNK
  6. VALIUM [Suspect]
     Dosage: 10 MG, 2X/DAY
  7. SOMA [Suspect]
     Indication: MYALGIA
     Dosage: UNK
     Route: 048
  8. LYRICA [Concomitant]
     Indication: CONVULSION
     Dosage: 150 MG, 2X/DAY
  9. LYRICA [Concomitant]
     Indication: NEUROPATHY PERIPHERAL
  10. DILANTIN [Concomitant]
     Indication: CONVULSION
     Dosage: UNK
  11. NEURONTIN [Concomitant]
     Indication: NEUROPATHY PERIPHERAL
     Dosage: UNK
  12. XANAX [Concomitant]
     Indication: PANIC ATTACK
     Dosage: 0.5 MG, UNK
  13. HYDROCODONE [Concomitant]
     Route: 048
  14. FIORICET W/ CODEINE [Concomitant]
     Indication: PAIN
  15. AMITRIPTYLINE [Concomitant]

REACTIONS (14)
  - BALANCE DISORDER [None]
  - BRAIN INJURY [None]
  - CONVULSION [None]
  - DERMAL CYST [None]
  - DRUG INEFFECTIVE [None]
  - DRY SKIN [None]
  - FALL [None]
  - FEELING ABNORMAL [None]
  - INSOMNIA [None]
  - LOSS OF CONSCIOUSNESS [None]
  - MEMORY IMPAIRMENT [None]
  - NIGHTMARE [None]
  - RIB FRACTURE [None]
  - WEIGHT INCREASED [None]
